FAERS Safety Report 4869363-7 (Version None)
Quarter: 2005Q4

REPORT INFORMATION
  Report Type: 
  Country: None (occurrence: None)
  Receive Date: 20051230
  Receipt Date: 20051109
  Transmission Date: 20060501
  Serious: Yes (Hospitalization)
  Sender: FDA-Public Use
  Company Number: 2005AP05899

PATIENT
  Age: 13900 Day
  Sex: Male
  Weight: 50 kg

DRUGS (6)
  1. DIPRIVAN [Suspect]
     Indication: SEDATION
     Route: 041
     Dates: start: 20041006, end: 20041023
  2. GLYCEROL 2.6% [Concomitant]
     Indication: BRAIN OEDEMA
     Route: 041
     Dates: start: 20041006, end: 20041001
  3. UNASYN [Concomitant]
     Indication: INFECTION PROPHYLAXIS
     Route: 041
     Dates: start: 20041007, end: 20041017
  4. GASTER [Concomitant]
     Indication: PROPHYLAXIS
     Route: 041
     Dates: start: 20041007
  5. NICARDIPINE HCL [Concomitant]
     Indication: HYPERTENSION
     Route: 041
     Dates: start: 20041007
  6. HUMULIN [Concomitant]
     Indication: DIABETES MELLITUS
     Route: 041
     Dates: start: 20041007

REACTIONS (3)
  - NEUROLEPTIC MALIGNANT SYNDROME [None]
  - PNEUMONIA ASPIRATION [None]
  - RHABDOMYOLYSIS [None]
